FAERS Safety Report 20077620 (Version 2)
Quarter: 2021Q4

REPORT INFORMATION
  Report Type: Report from Study
  Country: ZA (occurrence: None)
  Receive Date: 20211116
  Receipt Date: 20211203
  Transmission Date: 20220303
  Serious: Yes (Hospitalization)
  Sender: FDA-Public Use
  Company Number: ZA-ROCHE-2952082

PATIENT
  Age: 56 Year
  Sex: Female
  Weight: 76.6 kg

DRUGS (15)
  1. ATEZOLIZUMAB [Suspect]
     Active Substance: ATEZOLIZUMAB
     Indication: Oesophageal squamous cell carcinoma
     Dosage: THE MOST RECENT DOSE OF BLINDED ATEZOLIUMAB WAS ON 15/OCT/2021 PRIOR TO AE AND SAE
     Route: 042
     Dates: start: 20210114
  2. PLACEBO [Suspect]
     Active Substance: UNSPECIFIED INGREDIENT
     Indication: Oesophageal squamous cell carcinoma
     Dosage: THE MOST RECENT DOSE OF BLINDED TIRAGOLUMAB WAS ON 15/OCT/2021 PRIOR TO AE AND SAE
     Route: 042
     Dates: start: 20210114
  3. ETORICOXIB [Concomitant]
     Active Substance: ETORICOXIB
     Indication: Neck pain
     Dates: start: 20200901
  4. BUPRENORPHINE [Concomitant]
     Active Substance: BUPRENORPHINE
     Indication: Neck pain
     Dates: start: 20200901
  5. PREGABALIN [Concomitant]
     Active Substance: PREGABALIN
     Indication: Neck pain
     Dates: start: 20110101
  6. AMITRIPTYLINE [Concomitant]
     Active Substance: AMITRIPTYLINE
     Indication: Neck pain
     Dates: start: 20110101
  7. SINUMAX (SOUTH AFRICA) [Concomitant]
     Indication: Sinusitis
     Dosage: GIVEN FOR PROPHYLAXIS IS YES ;ONGOING: YES
     Dates: start: 20201101
  8. COMPRAL (SOUTH AFRICA) [Concomitant]
     Indication: Headache
     Dosage: GIVEN FOR PROPHYLAXIS IS YES ;ONGOING: YES
  9. FOSFOMYCIN TROMETHAMINE [Concomitant]
     Active Substance: FOSFOMYCIN TROMETHAMINE
     Indication: Urinary tract infection
     Dates: start: 20210204
  10. PYRIDOXINE [Concomitant]
     Active Substance: PYRIDOXINE
     Indication: Neuropathy peripheral
     Dates: start: 20210318
  11. NEXIUM [Concomitant]
     Active Substance: ESOMEPRAZOLE MAGNESIUM
     Indication: Abdominal pain upper
     Dates: start: 20210401
  12. BUPRENORPHINE HYDROCHLORIDE [Concomitant]
     Active Substance: BUPRENORPHINE HYDROCHLORIDE
     Indication: Pain
     Dates: start: 20210617
  13. OMEPRAZOLE [Concomitant]
     Active Substance: OMEPRAZOLE
     Indication: Abdominal pain upper
     Dates: start: 20210617
  14. SLOW K [Concomitant]
     Active Substance: POTASSIUM CHLORIDE
     Indication: Hypokalaemia
     Dates: start: 20210923, end: 20211015
  15. CALCIUM CARBONATE [Concomitant]
     Active Substance: CALCIUM CARBONATE
     Indication: Hypocalcaemia
     Dates: start: 20210923, end: 20211015

REACTIONS (1)
  - Urinary tract infection [Recovered/Resolved]

NARRATIVE: CASE EVENT DATE: 20211101
